FAERS Safety Report 22396946 (Version 1)
Quarter: 2023Q2

REPORT INFORMATION
  Report Type: Spontaneous
  Country: JP (occurrence: JP)
  Receive Date: 20230602
  Receipt Date: 20230602
  Transmission Date: 20230721
  Serious: Yes (Other)
  Sender: FDA-Public Use
  Company Number: JP-GILEAD-2022-0572012

PATIENT
  Age: 40 Year
  Sex: Male

DRUGS (22)
  1. VEKLURY [Interacting]
     Active Substance: REMDESIVIR
     Indication: COVID-19
     Dosage: 200 MG
     Route: 065
  2. VEKLURY [Interacting]
     Active Substance: REMDESIVIR
     Dosage: 100 MG
     Route: 065
  3. TACROLIMUS [Interacting]
     Active Substance: TACROLIMUS
     Indication: Prophylaxis against graft versus host disease
     Dosage: 4.5 MG, QD
     Route: 048
  4. TACROLIMUS [Interacting]
     Active Substance: TACROLIMUS
     Dosage: 3.5 MG, QD
     Route: 048
  5. TACROLIMUS [Interacting]
     Active Substance: TACROLIMUS
     Dosage: 3 MG, QD
     Route: 048
  6. TACROLIMUS [Interacting]
     Active Substance: TACROLIMUS
     Dosage: 2 MG, QD
     Route: 048
  7. TACROLIMUS [Interacting]
     Active Substance: TACROLIMUS
     Dosage: 3 MG, QD
     Route: 048
  8. TACROLIMUS [Interacting]
     Active Substance: TACROLIMUS
     Dosage: 2 MG, QD
     Route: 048
  9. EVEROLIMUS [Concomitant]
     Active Substance: EVEROLIMUS
     Dosage: 0.875 MG, BID
     Route: 048
  10. PREDNISOLONE [Concomitant]
     Active Substance: PREDNISOLONE
     Dosage: 5 MG, QD
     Route: 048
  11. FAMOTIDINE [Concomitant]
     Active Substance: FAMOTIDINE
     Dosage: 10 MG, QD
     Route: 048
  12. SULFAMETHOXAZOLE\TRIMETHOPRIM [Concomitant]
     Active Substance: SULFAMETHOXAZOLE\TRIMETHOPRIM
     Dosage: 1 DOSAGE FORM, Q1WK
     Route: 048
  13. FEBUXOSTAT [Concomitant]
     Active Substance: FEBUXOSTAT
     Dosage: 20 MG, QD
     Route: 048
  14. FLUVASTATIN [FLUVASTATIN SODIUM] [Concomitant]
     Dosage: 60 MG, QD
     Route: 048
  15. AMLODIPINE BESYLATE [Concomitant]
     Active Substance: AMLODIPINE BESYLATE
     Dosage: 2.5 MG, QD
     Route: 048
  16. BUDESONIDE [Concomitant]
     Active Substance: BUDESONIDE
     Dosage: BID
  17. MESALAMINE [Concomitant]
     Active Substance: MESALAMINE
     Dosage: 400 MG, BID
  18. EDOXABAN TOSYLATE [Concomitant]
     Active Substance: EDOXABAN TOSYLATE
     Indication: Prophylaxis
     Dosage: 30 MG
  19. CEFTRIAXONE SODIUM [Concomitant]
     Active Substance: CEFTRIAXONE SODIUM
     Indication: Pneumonia bacterial
     Dosage: 2 G
  20. LEVOFLOXACIN HEMIHYDRATE [Concomitant]
     Active Substance: LEVOFLOXACIN
     Indication: Pneumonia bacterial
     Dosage: 500 MG
  21. LEVOFLOXACIN HEMIHYDRATE [Concomitant]
     Active Substance: LEVOFLOXACIN
     Dosage: 250 MG
  22. METHYLPREDNISOLONE SODIUM SUCCINATE [Concomitant]
     Active Substance: METHYLPREDNISOLONE SODIUM SUCCINATE
     Dosage: 500 MG

REACTIONS (3)
  - Renal impairment [Unknown]
  - Drug level increased [Recovered/Resolved]
  - Drug interaction [Unknown]
